FAERS Safety Report 18935783 (Version 2)
Quarter: 2021Q2

REPORT INFORMATION
  Report Type: Spontaneous
  Country: US (occurrence: US)
  Receive Date: 20210225
  Receipt Date: 20210410
  Transmission Date: 20210717
  Serious: No
  Sender: FDA-Public Use
  Company Number: US-CELGENEUS-USA-20210204643

PATIENT
  Sex: Female

DRUGS (5)
  1. THALOMID [Suspect]
     Active Substance: THALIDOMIDE
     Indication: BEHCET^S SYNDROME
     Dosage: 100 MILLIGRAM
     Route: 048
     Dates: start: 200105
  2. THALOMID [Suspect]
     Active Substance: THALIDOMIDE
     Dosage: 50?100MG
     Route: 048
     Dates: start: 200311
  3. THALOMID [Suspect]
     Active Substance: THALIDOMIDE
     Indication: OFF LABEL USE
     Dosage: 50?100MG
     Route: 048
     Dates: start: 200205
  4. THALOMID [Suspect]
     Active Substance: THALIDOMIDE
     Dosage: 50 MILLIGRAM
     Route: 048
     Dates: start: 202009
  5. THALOMID [Suspect]
     Active Substance: THALIDOMIDE
     Dosage: 800?100MG
     Route: 048
     Dates: start: 200210

REACTIONS (4)
  - Oral pain [Unknown]
  - Diplopia [Unknown]
  - Fatigue [Unknown]
  - Depression [Unknown]
